FAERS Safety Report 6967212-4 (Version None)
Quarter: 2010Q3

REPORT INFORMATION
  Report Type: 
  Country: None (occurrence: None)
  Receive Date: 20100901
  Receipt Date: 20100707
  Transmission Date: 20110219
  Serious: Yes (Other)
  Sender: FDA-Public Use
  Company Number: TUK2010A00209

PATIENT
  Sex: Female

DRUGS (2)
  1. ACTOS [Suspect]
     Indication: TYPE 2 DIABETES MELLITUS
     Dosage: 15 MG (15 MG), 30 MG (30 MG)
  2. INSULIN (INSULIN) [Concomitant]

REACTIONS (2)
  - CHLOROPSIA [None]
  - HYPOGLYCAEMIA [None]
